FAERS Safety Report 14723766 (Version 2)
Quarter: 2018Q2

REPORT INFORMATION
  Report Type: Spontaneous
  Country: US (occurrence: US)
  Receive Date: 20180405
  Receipt Date: 20180504
  Transmission Date: 20180711
  Serious: No
  Sender: FDA-Public Use
  Company Number: US-ASTELLAS-2018US016189

PATIENT
  Age: 43 Year
  Sex: Male

DRUGS (9)
  1. MAALOX ANTACID [Concomitant]
     Active Substance: ALUMINUM HYDROXIDE\DIMETHICONE\MAGNESIUM HYDROXIDE
     Indication: ANTIFUNGAL PROPHYLAXIS
     Route: 065
     Dates: start: 20170824
  2. MYCAMINE [Suspect]
     Active Substance: MICAFUNGIN SODIUM
     Indication: ANTIFUNGAL PROPHYLAXIS
     Route: 042
     Dates: start: 20170824, end: 20170901
  3. MAGNESIUM SULFATE. [Concomitant]
     Active Substance: MAGNESIUM SULFATE
     Indication: ANTIFUNGAL PROPHYLAXIS
     Dosage: UNK UNK, UNKNOWN FREQ.
     Route: 042
     Dates: start: 20170824
  4. ZOSYN [Concomitant]
     Active Substance: PIPERACILLIN SODIUM\TAZOBACTAM SODIUM
     Indication: ANTIFUNGAL PROPHYLAXIS
     Dosage: UNK UNK, EVERY 8 HOURS
     Route: 042
     Dates: start: 20170824, end: 20170829
  5. POTASSIUM CHLORIDE. [Concomitant]
     Active Substance: POTASSIUM CHLORIDE
     Indication: ANTIFUNGAL PROPHYLAXIS
     Dosage: 40 MEQ/100 ML, UNKNOWN FREQ.
     Route: 042
     Dates: start: 20170824
  6. DIPHENHYDRAMINE. [Concomitant]
     Active Substance: DIPHENHYDRAMINE
     Indication: ANTIFUNGAL PROPHYLAXIS
     Route: 065
     Dates: start: 20170824
  7. MORPHINE [Concomitant]
     Active Substance: MORPHINE
     Indication: PRODUCT USED FOR UNKNOWN INDICATION
     Dosage: UNK UNK, ONCE DAILY
     Route: 042
     Dates: start: 20170824
  8. NORMAL SALINE [Concomitant]
     Active Substance: SODIUM CHLORIDE
     Indication: ANTIFUNGAL PROPHYLAXIS
     Dosage: 1000 ML/HOUR, UNKNOWN FREQ.
     Route: 042
     Dates: start: 20170824
  9. VANCOMYCIN [Concomitant]
     Active Substance: VANCOMYCIN
     Indication: ANTIFUNGAL PROPHYLAXIS
     Dosage: UNK UNK, ONCE DAILY
     Route: 042
     Dates: start: 20170824

REACTIONS (1)
  - Off label use [Unknown]
